FAERS Safety Report 23050441 (Version 5)
Quarter: 2025Q3

REPORT INFORMATION
  Report Type: Spontaneous
  Country: US (occurrence: US)
  Receive Date: 20231010
  Receipt Date: 20250819
  Transmission Date: 20251021
  Serious: Yes (Other)
  Sender: PFIZER
  Company Number: US-PFIZER INC-PV202300082894

PATIENT
  Age: 68 Year
  Sex: Female

DRUGS (1)
  1. XELJANZ XR [Suspect]
     Active Substance: TOFACITINIB CITRATE
     Indication: Rheumatoid arthritis
     Dosage: 11 MG QD (ONCE A DAY)
     Route: 048
     Dates: start: 2022

REACTIONS (6)
  - Tenosynovitis [Recovering/Resolving]
  - Bone density decreased [Unknown]
  - Inflammation [Recovering/Resolving]
  - Condition aggravated [Unknown]
  - Osteoarthritis [Unknown]
  - Tooth disorder [Unknown]
